FAERS Safety Report 24831595 (Version 1)
Quarter: 2025Q1

REPORT INFORMATION
  Report Type: Spontaneous
  Country: PL (occurrence: PL)
  Receive Date: 20250110
  Receipt Date: 20250110
  Transmission Date: 20250408
  Serious: Yes (Other)
  Sender: AMICUS THERAPEUTICS
  Company Number: PL-AMICUS THERAPEUTICS, INC.-AMI_3659

PATIENT
  Sex: Male

DRUGS (1)
  1. GALAFOLD [Suspect]
     Active Substance: MIGALASTAT HYDROCHLORIDE
     Indication: Fabry^s disease
     Route: 048

REACTIONS (1)
  - Tongue neoplasm [Not Recovered/Not Resolved]
